FAERS Safety Report 7525369-0 (Version None)
Quarter: 2011Q2

REPORT INFORMATION
  Report Type: 
  Country: None (occurrence: None)
  Receive Date: 20110606
  Receipt Date: 20110526
  Transmission Date: 20111010
  Serious: Yes (Other)
  Sender: FDA-Public Use
  Company Number: SE-NOVOPROD-328962

PATIENT
  Age: 51 Year
  Sex: Male

DRUGS (1)
  1. GLUCAGEN [Suspect]
     Indication: PRODUCT USED FOR UNKNOWN INDICATION
     Dosage: UNK
     Route: 065

REACTIONS (3)
  - HYPOAESTHESIA [None]
  - ABDOMINAL PAIN [None]
  - NAUSEA [None]
